FAERS Safety Report 4713694-8 (Version None)
Quarter: 2005Q3

REPORT INFORMATION
  Report Type: 
  Country: None (occurrence: None)
  Receive Date: 20050713
  Receipt Date: 20050701
  Transmission Date: 20060218
  Serious: Yes (Death, Other)
  Sender: FDA-Public Use
  Company Number: 200510909BCC

PATIENT
  Sex: Male
  Weight: 68.0396 kg

DRUGS (1)
  1. MILK OF MAGNESIA TAB [Suspect]
     Indication: CONSTIPATION
     Dosage: 4800 MG, TOTAL DAILY, ORAL
     Route: 048

REACTIONS (6)
  - BLOOD TEST ABNORMAL [None]
  - CARDIAC FAILURE CONGESTIVE [None]
  - CARDIOVASCULAR DISORDER [None]
  - CORONARY ARTERY ATHEROSCLEROSIS [None]
  - FAECES DISCOLOURED [None]
  - HAEMORRHAGE [None]
